FAERS Safety Report 10086125 (Version 3)
Quarter: 2014Q2

REPORT INFORMATION
  Report Type: Spontaneous
  Country: GB (occurrence: None)
  Receive Date: 20140416
  Receipt Date: 20140523
  Transmission Date: 20141212
  Serious: Yes (Life-Threatening, Hospitalization)
  Sender: FDA-Public Use
  Company Number: 2286053

PATIENT
  Age: 70 Year
  Sex: Male
  Weight: 74 kg

DRUGS (8)
  1. VANCOMYCIN HYDROCHLORIDE [Suspect]
     Indication: ANTIBIOTIC PROPHYLAXIS
     Dosage: 750 MG MILLIGRAM(S), 2 DAY, INTRAVENOUS (NOT OTHERWISE SPECIFIED)
     Route: 042
     Dates: start: 20140228, end: 20140228
  2. PROTROMBINECOMPLEX [Suspect]
     Indication: EMERGENCY CARE
     Dosage: 2000 IU INTERNATIONAL UNIT9S) (1 DAY), INTRAVENOUS (NOT OTHERWISE SPECIFIED)?
     Route: 042
     Dates: start: 20140228, end: 20140228
  3. CHLORHEXIDINE [Concomitant]
  4. WARFARIN [Concomitant]
  5. DIGOXIN [Concomitant]
  6. WHITE SOFT PARAFFIN [Concomitant]
  7. CALCIUM CARBONATE W/COLECALCIFEROL [Concomitant]
  8. BISOPROLOL [Concomitant]

REACTIONS (9)
  - Respiratory distress [None]
  - Blood pressure increased [None]
  - Urticaria [None]
  - Rash [None]
  - Pruritus [None]
  - Dyspnoea [None]
  - Erythema [None]
  - Unevaluable event [None]
  - International normalised ratio increased [None]
